FAERS Safety Report 20719046 (Version 1)
Quarter: 2022Q2

REPORT INFORMATION
  Report Type: Spontaneous
  Country: US (occurrence: None)
  Receive Date: 20220415
  Receipt Date: 20220415
  Transmission Date: 20220720
  Serious: Yes (Hospitalization, Other)
  Sender: FDA-Public Use
  Company Number: None

PATIENT
  Age: 63 Year
  Sex: Female

DRUGS (1)
  1. CAPECITABINE [Suspect]
     Active Substance: CAPECITABINE
     Indication: Breast cancer
     Dosage: OTHER QUANTITY : 1500MG AM, 2000 MG;?FREQUENCY : TWICE A DAY;?
     Route: 048

REACTIONS (2)
  - Fatigue [None]
  - Therapy cessation [None]

NARRATIVE: CASE EVENT DATE: 20220329
